FAERS Safety Report 20664914 (Version 2)
Quarter: 2022Q2

REPORT INFORMATION
  Report Type: Spontaneous
  Country: US (occurrence: US)
  Receive Date: 20220401
  Receipt Date: 20220509
  Transmission Date: 20220721
  Serious: No
  Sender: FDA-Public Use
  Company Number: US-NOVARTISTESTPH-NVSC2022US074115

PATIENT
  Sex: Male

DRUGS (4)
  1. TAFINLAR [Suspect]
     Active Substance: DABRAFENIB MESYLATE
     Indication: Malignant melanoma
     Dosage: 75 MG (150 MG, BID)
     Route: 048
     Dates: start: 202201
  2. TAFINLAR [Suspect]
     Active Substance: DABRAFENIB MESYLATE
     Indication: Malignant melanoma
     Dosage: 50 MG (100 MG, Q12H)
     Route: 048
     Dates: start: 202203
  3. MEKINIST [Suspect]
     Active Substance: TRAMETINIB DIMETHYL SULFOXIDE
     Indication: Malignant melanoma
     Dosage: 2 MG (2 MG, QD)
     Route: 048
     Dates: start: 202201
  4. MEKINIST [Suspect]
     Active Substance: TRAMETINIB DIMETHYL SULFOXIDE
     Indication: Malignant melanoma
     Dosage: 0.5 MG (1.5 MG, QD)
     Route: 048
     Dates: start: 202203

REACTIONS (5)
  - Joint swelling [Unknown]
  - Pyrexia [Unknown]
  - Chills [Unknown]
  - Hepatic enzyme increased [Unknown]
  - Arthralgia [Unknown]
